FAERS Safety Report 15126149 (Version 4)
Quarter: 2018Q3

REPORT INFORMATION
  Report Type: Spontaneous
  Country: BR (occurrence: BR)
  Receive Date: 20180710
  Receipt Date: 20180807
  Transmission Date: 20181010
  Serious: Yes (Death, Hospitalization, Other)
  Sender: FDA-Public Use
  Company Number: BR-PFIZER INC-2018270034

PATIENT
  Age: 91 Year
  Sex: Male
  Weight: 62 kg

DRUGS (3)
  1. SUTENT [Suspect]
     Active Substance: SUNITINIB MALATE
     Indication: RENAL NEOPLASM
     Dosage: 50MG CYLIC 2 X 1 (1 TABLET PER DAY FOR 2 WEEKS AND STOPPED 1 WEEK)
     Dates: start: 20180619, end: 20180702
  2. MORPHINE [Concomitant]
     Active Substance: MORPHINE
     Indication: PAIN
     Dosage: UNK
     Dates: start: 201805
  3. DRAMAMINE [Concomitant]
     Active Substance: DIMENHYDRINATE
     Indication: NAUSEA
     Dosage: UNK
     Dates: start: 201805

REACTIONS (13)
  - Platelet count decreased [Unknown]
  - Nausea [Unknown]
  - Feeding disorder [Unknown]
  - Weight decreased [Unknown]
  - Neoplasm progression [Fatal]
  - Faeces discoloured [Unknown]
  - Yellow skin [Unknown]
  - Pallor [Unknown]
  - Haemolysis [Unknown]
  - Dysstasia [Unknown]
  - Respiratory failure [Fatal]
  - Peripheral swelling [Not Recovered/Not Resolved]
  - Red blood cell count decreased [Unknown]

NARRATIVE: CASE EVENT DATE: 2018
